FAERS Safety Report 21839955 (Version 1)
Quarter: 2023Q1

REPORT INFORMATION
  Report Type: Spontaneous
  Country: CN (occurrence: None)
  Receive Date: 20230110
  Receipt Date: 20230110
  Transmission Date: 20230417
  Serious: Yes (Other)
  Sender: FDA-Public Use
  Company Number: CN-ROCHE-3256256

PATIENT
  Age: 56 Year
  Sex: Female
  Weight: 51 kg

DRUGS (7)
  1. PERJETA [Suspect]
     Active Substance: PERTUZUMAB
     Indication: Breast cancer
     Dosage: 840 MG
     Route: 041
     Dates: start: 20221121, end: 20221209
  2. HERCEPTIN [Suspect]
     Active Substance: TRASTUZUMAB
     Indication: Breast cancer
     Dosage: 8MG/KG
     Route: 041
     Dates: start: 20221121, end: 20221209
  3. CARBOPLATIN [Suspect]
     Active Substance: CARBOPLATIN
     Indication: Breast cancer
     Route: 041
     Dates: start: 20221121, end: 20221209
  4. PACLITAXEL [Suspect]
     Active Substance: PACLITAXEL
     Indication: Breast cancer
     Route: 041
     Dates: start: 20221121, end: 20221209
  5. SODIUM CHLORIDE [Concomitant]
     Active Substance: SODIUM CHLORIDE
     Route: 041
     Dates: start: 20221121, end: 20221209
  6. SODIUM CHLORIDE [Concomitant]
     Active Substance: SODIUM CHLORIDE
     Route: 041
     Dates: start: 20221121, end: 20221209
  7. DEXTROSE [Concomitant]
     Active Substance: DEXTROSE
     Route: 041
     Dates: start: 20221120, end: 20221209

REACTIONS (1)
  - Hepatic function abnormal [Unknown]

NARRATIVE: CASE EVENT DATE: 20221209
